FAERS Safety Report 4956830-0 (Version None)
Quarter: 2006Q1

REPORT INFORMATION
  Report Type: 
  Country: None (occurrence: None)
  Receive Date: 20060323
  Receipt Date: 20060316
  Transmission Date: 20060701
  Serious: Yes (Death, Hospitalization)
  Sender: FDA-Public Use
  Company Number: STA-AE-06-026

PATIENT
  Age: 61 Year
  Sex: Male

DRUGS (5)
  1. ACYCLOVIR [Suspect]
     Indication: HEPATITIS
     Dosage: 3 X 10MG/KG
  2. ACYCLOVIR [Suspect]
     Indication: HERPES SIMPLEX
     Dosage: 3 X 10MG/KG
  3. CYCLOSPORINE [Suspect]
     Indication: LIVER TRANSPLANT
  4. AZATHIOPRINE [Suspect]
     Indication: LIVER TRANSPLANT
     Dosage: 125 MG/D
  5. METHYLPREDNISOLONE [Suspect]
     Indication: LIVER TRANSPLANT
     Dosage: 240 MG/D

REACTIONS (33)
  - ANTITHROMBIN III DECREASED [None]
  - ANURIA [None]
  - ASCITES [None]
  - BLOOD CHOLINESTERASE INCREASED [None]
  - BLOOD CREATININE INCREASED [None]
  - BLOOD LACTATE DEHYDROGENASE INCREASED [None]
  - BRONCHIAL ULCERATION [None]
  - CARDIAC FAILURE [None]
  - CHOLESTASIS [None]
  - COMPLICATIONS OF TRANSPLANTED LIVER [None]
  - CYTOMEGALOVIRUS ANTIBODY POSITIVE [None]
  - EPSTEIN-BARR VIRUS ANTIBODY POSITIVE [None]
  - HAEMODIALYSIS [None]
  - HAEMOGLOBIN DECREASED [None]
  - HEPATIC FAILURE [None]
  - HEPATITIS [None]
  - HEPATITIS CHOLESTATIC [None]
  - HERPES SIMPLEX [None]
  - HERPES ZOSTER DISSEMINATED [None]
  - INTERNATIONAL NORMALISED RATIO INCREASED [None]
  - MULTI-ORGAN FAILURE [None]
  - OEDEMA [None]
  - PLATELET COUNT DECREASED [None]
  - PNEUMONIA BACTERIAL [None]
  - PORTAL VEIN THROMBOSIS [None]
  - RED BLOOD CELL COUNT DECREASED [None]
  - RESPIRATORY FAILURE [None]
  - SURGICAL PROCEDURE REPEATED [None]
  - TRACHEAL ULCER [None]
  - TRACHEOBRONCHITIS [None]
  - VARICELLA ZOSTER VIRUS SEROLOGY POSITIVE [None]
  - VIRAL DNA TEST POSITIVE [None]
  - WHITE BLOOD CELL COUNT INCREASED [None]
